FAERS Safety Report 18077903 (Version 9)
Quarter: 2022Q2

REPORT INFORMATION
  Report Type: Report from Study
  Country: US (occurrence: US)
  Receive Date: 20200727
  Receipt Date: 20220419
  Transmission Date: 20220721
  Serious: Yes (Other)
  Sender: FDA-Public Use
  Company Number: None

PATIENT
  Age: 69 Year
  Sex: Female

DRUGS (2)
  1. KISQALI [Suspect]
     Active Substance: RIBOCICLIB
     Indication: Breast cancer
     Dosage: 600 MG, QD
     Route: 048
     Dates: start: 20200603, end: 20201114
  2. PIQRAY [Suspect]
     Active Substance: ALPELISIB
     Indication: Breast cancer
     Dosage: 300 MG, QD
     Route: 048

REACTIONS (25)
  - Renal impairment [Recovered/Resolved]
  - Rash [Recovering/Resolving]
  - Fall [Unknown]
  - Vision blurred [Not Recovered/Not Resolved]
  - Swollen tongue [Recovering/Resolving]
  - Flushing [Recovered/Resolved]
  - Dizziness [Not Recovered/Not Resolved]
  - Oral pain [Recovering/Resolving]
  - Stomatitis [Recovering/Resolving]
  - Concussion [Unknown]
  - Dehydration [Unknown]
  - Pain in extremity [Unknown]
  - Arthralgia [Unknown]
  - Myalgia [Unknown]
  - Tendonitis [Unknown]
  - Malaise [Unknown]
  - Bone pain [Unknown]
  - Illness [Recovered/Resolved]
  - Abdominal discomfort [Recovering/Resolving]
  - Pain in jaw [Recovering/Resolving]
  - Alopecia [Recovering/Resolving]
  - Pruritus [Unknown]
  - Vomiting [Unknown]
  - Dysgeusia [Unknown]
  - Headache [Recovering/Resolving]

NARRATIVE: CASE EVENT DATE: 20201014
